FAERS Safety Report 6195991-5 (Version None)
Quarter: 2009Q2

REPORT INFORMATION
  Report Type: 
  Country: None (occurrence: None)
  Receive Date: 20090520
  Receipt Date: 20090514
  Transmission Date: 20091009
  Serious: Yes (Other)
  Sender: FDA-Public Use
  Company Number: FR-AVENTIS-200911770FR

PATIENT
  Age: 66 Year
  Sex: Male

DRUGS (9)
  1. RIFADIN [Suspect]
     Indication: OSTEITIS
     Route: 048
     Dates: start: 20090319, end: 20090408
  2. OFLOCET                            /00731801/ [Suspect]
     Indication: OSTEITIS
     Route: 048
     Dates: start: 20090319, end: 20090408
  3. VANCOMYCIN [Suspect]
     Indication: OSTEITIS
     Route: 042
     Dates: start: 20090319, end: 20090406
  4. SOTALEX [Concomitant]
  5. KARDEGIC                           /00002703/ [Concomitant]
  6. MICARDIS [Concomitant]
     Route: 048
  7. LERCAN [Concomitant]
     Route: 048
  8. PLAVIX [Concomitant]
     Route: 048
  9. INEGY [Concomitant]

REACTIONS (10)
  - APHTHOUS STOMATITIS [None]
  - ASTHENIA [None]
  - BLOOD CREATININE INCREASED [None]
  - CYTOLYTIC HEPATITIS [None]
  - DRUG RASH WITH EOSINOPHILIA AND SYSTEMIC SYMPTOMS [None]
  - EOSINOPHILIA [None]
  - HYPERSENSITIVITY [None]
  - HYPOTENSION [None]
  - PYREXIA [None]
  - RASH [None]
